FAERS Safety Report 8125343-X (Version None)
Quarter: 2012Q1

REPORT INFORMATION
  Report Type: 
  Country: None (occurrence: None)
  Receive Date: 20120209
  Receipt Date: 20120206
  Transmission Date: 20120608
  Serious: Yes (Other)
  Sender: FDA-Public Use
  Company Number: US-GLAXOSMITHKLINE-A0964793A

PATIENT
  Sex: Female

DRUGS (4)
  1. LOVAZA [Suspect]
     Indication: BLOOD CHOLESTEROL INCREASED
     Dosage: 1CAP PER DAY
     Route: 048
  2. WARFARIN SODIUM [Concomitant]
  3. BYSTOLIC [Concomitant]
  4. ASPIRIN [Concomitant]

REACTIONS (2)
  - LACERATION [None]
  - HAEMORRHAGE [None]
